FAERS Safety Report 16108930 (Version 2)
Quarter: 2019Q2

REPORT INFORMATION
  Report Type: Spontaneous
  Country: US (occurrence: US)
  Receive Date: 20190323
  Receipt Date: 20190620
  Transmission Date: 20190711
  Serious: No
  Sender: FDA-Public Use
  Company Number: US-THERAPEUTICSMD-2019TMD00172

PATIENT
  Age: 80 Year
  Sex: Female
  Weight: 42.63 kg

DRUGS (8)
  1. OXYCODONE [Concomitant]
     Active Substance: OXYCODONE
  2. LASIX [Concomitant]
     Active Substance: FUROSEMIDE
  3. UNSPECIFIED HIGH BLOOD PRESSURE MEDICATION [Concomitant]
     Active Substance: UNSPECIFIED INGREDIENT
  4. ^HEART PILLS^ [Concomitant]
  5. UNSPECIFIED RESTLESS LEG SYNDROME MEDICATION [Concomitant]
  6. UNSPECIFIED ^PLENTY OF OTHER PILLS^ [Concomitant]
  7. IMVEXXY [Suspect]
     Active Substance: ESTRADIOL
     Indication: VULVOVAGINAL DRYNESS
     Dosage: 4 ?G, 2X/WEEK IN THE MORNING
     Route: 067
     Dates: start: 201901, end: 201903
  8. BUTRANS [Concomitant]
     Active Substance: BUPRENORPHINE

REACTIONS (6)
  - Food aversion [Not Recovered/Not Resolved]
  - Confusional state [Not Recovered/Not Resolved]
  - Off label use [Recovered/Resolved]
  - Incoherent [Not Recovered/Not Resolved]
  - Somnolence [Not Recovered/Not Resolved]
  - Abnormal behaviour [Not Recovered/Not Resolved]

NARRATIVE: CASE EVENT DATE: 2019
